FAERS Safety Report 16653345 (Version 1)
Quarter: 2019Q3

REPORT INFORMATION
  Report Type: Spontaneous
  Country: US (occurrence: US)
  Receive Date: 20190731
  Receipt Date: 20190731
  Transmission Date: 20191004
  Serious: Yes (Hospitalization)
  Sender: FDA-Public Use
  Company Number: US-PFIZER INC-2019323314

PATIENT
  Age: 73 Year
  Sex: Male
  Weight: 68.4 kg

DRUGS (1)
  1. RAPAMUNE [Suspect]
     Active Substance: SIROLIMUS
     Indication: RENAL TRANSPLANT
     Dosage: 2 DF, 1X/DAY
     Route: 048
     Dates: start: 2017

REACTIONS (5)
  - Gait disturbance [Unknown]
  - Pain in extremity [Unknown]
  - Fall [Not Recovered/Not Resolved]
  - Weight decreased [Unknown]
  - Stomatitis [Not Recovered/Not Resolved]

NARRATIVE: CASE EVENT DATE: 2017
